FAERS Safety Report 10039024 (Version 2)
Quarter: 2014Q3

REPORT INFORMATION
  Report Type: Report from Study
  Country: GB (occurrence: GB)
  Receive Date: 20140326
  Receipt Date: 20140819
  Transmission Date: 20150326
  Serious: Yes (Hospitalization)
  Sender: FDA-Public Use
  Company Number: GB-BRISTOL-MYERS SQUIBB COMPANY-20548178

PATIENT
  Age: 77 Year
  Sex: Female

DRUGS (6)
  1. PERINDOPRIL [Concomitant]
     Active Substance: PERINDOPRIL
  2. DEXAMETHASONE. [Concomitant]
     Active Substance: DEXAMETHASONE
     Dates: start: 20140227
  3. SIMVASTATIN. [Concomitant]
     Active Substance: SIMVASTATIN
  4. MOXONIDINE [Concomitant]
     Active Substance: MOXONIDINE
  5. IPILIMUMAB [Suspect]
     Active Substance: IPILIMUMAB
     Indication: METASTATIC MALIGNANT MELANOMA
     Dosage: 240MG
     Route: 042
     Dates: start: 20140121, end: 20140121
  6. ASPIRIN. [Concomitant]
     Active Substance: ASPIRIN

REACTIONS (2)
  - Vomiting [Recovered/Resolved]
  - Diarrhoea [Recovered/Resolved]

NARRATIVE: CASE EVENT DATE: 20140309
